FAERS Safety Report 8519963-8 (Version None)
Quarter: 2012Q3

REPORT INFORMATION
  Report Type: 
  Country: None (occurrence: None)
  Receive Date: 20120719
  Receipt Date: 20120716
  Transmission Date: 20120928
  Serious: No
  Sender: FDA-Public Use
  Company Number: US-009507513-1207USA005258

PATIENT

DRUGS (1)
  1. NASONEX [Suspect]
     Dosage: 2 DF, QD
     Route: 045
     Dates: start: 20120705, end: 20120714

REACTIONS (3)
  - DRY THROAT [None]
  - NASAL DRYNESS [None]
  - THROAT IRRITATION [None]
